FAERS Safety Report 5294502-6 (Version None)
Quarter: 2007Q2

REPORT INFORMATION
  Report Type: 
  Country: None (occurrence: None)
  Receive Date: 20070412
  Receipt Date: 20070410
  Transmission Date: 20071010
  Serious: Yes (Life-Threatening, Hospitalization, Disabling, Other)
  Sender: FDA-Public Use
  Company Number: US-BRISTOL-MYERS SQUIBB COMPANY-13688965

PATIENT
  Age: 48 Year
  Sex: Female

DRUGS (6)
  1. ERBITUX [Suspect]
     Indication: ANAL CANCER
     Route: 042
  2. IRINOTECAN HCL [Suspect]
  3. AMBIEN CR [Concomitant]
  4. LOMOTIL [Concomitant]
  5. KYTRIL [Concomitant]
  6. LORTAB [Concomitant]

REACTIONS (1)
  - IDIOPATHIC THROMBOCYTOPENIC PURPURA [None]
